FAERS Safety Report 15121104 (Version 5)
Quarter: 2019Q3

REPORT INFORMATION
  Report Type: Spontaneous
  Country: US (occurrence: US)
  Receive Date: 20180709
  Receipt Date: 20190809
  Transmission Date: 20191004
  Serious: No
  Sender: FDA-Public Use
  Company Number: US-SA-2018SA177548

PATIENT
  Sex: Female

DRUGS (4)
  1. PRALUENT [Suspect]
     Active Substance: ALIROCUMAB
     Indication: HYPOTHYROIDISM
     Dosage: 1 DF, QOW
     Route: 058
  2. LUNESTA [Concomitant]
     Active Substance: ESZOPICLONE
     Dosage: 3 MG
  3. XOLAIR [Concomitant]
     Active Substance: OMALIZUMAB
     Dosage: 150 MG
  4. ALIROCUMAB PREFILLED PEN [Suspect]
     Active Substance: ALIROCUMAB
     Indication: HYPOTHYROIDISM
     Dosage: UNK UNK, QOW

REACTIONS (5)
  - Arthralgia [Not Recovered/Not Resolved]
  - Sneezing [Unknown]
  - Myalgia [Not Recovered/Not Resolved]
  - Muscle twitching [Not Recovered/Not Resolved]
  - Unevaluable event [Recovered/Resolved]
